FAERS Safety Report 6284178-3 (Version None)
Quarter: 2009Q3

REPORT INFORMATION
  Report Type: 
  Country: None (occurrence: None)
  Receive Date: 20090727
  Receipt Date: 20090724
  Transmission Date: 20100115
  Serious: Yes (Death, Other)
  Sender: FDA-Public Use
  Company Number: GB-JNJFOC-20090707766

PATIENT
  Sex: Male

DRUGS (4)
  1. DURAGESIC-100 [Suspect]
     Indication: PAIN
     Dosage: 75 UG/HR AND 12.5 UG/HR
     Route: 062
  2. TRAMADOL [Concomitant]
     Indication: BREAKTHROUGH PAIN
     Route: 042
  3. ACETAMINOPHEN [Concomitant]
     Indication: BREAKTHROUGH PAIN
     Route: 042
  4. DIAMORPHINE [Concomitant]
     Indication: BREAKTHROUGH PAIN

REACTIONS (3)
  - DEATH [None]
  - HAEMATEMESIS [None]
  - IMPAIRED GASTRIC EMPTYING [None]
